FAERS Safety Report 5953256 (Version 17)
Quarter: 2014Q1

REPORT INFORMATION
  Report Type: Spontaneous
  Country: US (occurrence: US)
  Receive Date: 20041112
  Receipt Date: 20140219
  Transmission Date: 20141002
  Serious: Yes (Disabling)
  Sender: FDA-Public Use
  Company Number: US-ROCHE-385665

PATIENT
  Age: 26 Year
  Sex: Female
  Weight: 56.9 kg

DRUGS (2)
  1. ACCUTANE [Suspect]
     Indication: ACNE CYSTIC
     Route: 065
     Dates: start: 19961111, end: 19970206
  2. DEPO-PROVERA [Concomitant]
     Indication: CONTRACEPTION
     Route: 065

REACTIONS (59)
  - Colitis ulcerative [Recovering/Resolving]
  - Vasculitis [Recovering/Resolving]
  - Colitis [Not Recovered/Not Resolved]
  - Rectal haemorrhage [Unknown]
  - Colitis [Recovering/Resolving]
  - Musculoskeletal disorder [Unknown]
  - Osteopenia [Unknown]
  - Body height decreased [Unknown]
  - Inflammatory bowel disease [Unknown]
  - Diarrhoea [Unknown]
  - Diarrhoea [Unknown]
  - Haematochezia [Unknown]
  - Abdominal pain [Unknown]
  - Frequent bowel movements [Unknown]
  - Flatulence [Unknown]
  - Tenderness [Unknown]
  - Abdominal tenderness [Unknown]
  - Abdominal discomfort [Unknown]
  - Abdominal pain [Unknown]
  - Dyspepsia [Unknown]
  - Inflammatory bowel disease [Unknown]
  - Gastrointestinal disorder [Unknown]
  - Internal injury [Unknown]
  - Intestinal haemorrhage [Unknown]
  - Autoimmune disorder [Unknown]
  - Bone disorder [Unknown]
  - Palindromic rheumatism [Unknown]
  - Arthralgia [Unknown]
  - Arthralgia [Unknown]
  - Arthralgia [Unknown]
  - Arthralgia [Unknown]
  - Arthritis [Unknown]
  - Pain [Unknown]
  - Rheumatoid arthritis [Unknown]
  - Scoliosis [Not Recovered/Not Resolved]
  - Systemic lupus erythematosus [Unknown]
  - Osteoarthritis [Not Recovered/Not Resolved]
  - Musculoskeletal pain [Not Recovered/Not Resolved]
  - Joint crepitation [Not Recovered/Not Resolved]
  - Connective tissue disorder [Not Recovered/Not Resolved]
  - Osteoporosis [Not Recovered/Not Resolved]
  - Musculoskeletal chest pain [Not Recovered/Not Resolved]
  - Nausea [Not Recovered/Not Resolved]
  - Mouth ulceration [Unknown]
  - Tendonitis [Unknown]
  - Emotional distress [Not Recovered/Not Resolved]
  - Hyperhidrosis [Unknown]
  - Burns second degree [Unknown]
  - Vertigo [Unknown]
  - Weight increased [Unknown]
  - Temporomandibular joint syndrome [Unknown]
  - Ear pain [Unknown]
  - Restless legs syndrome [Unknown]
  - Constipation [Unknown]
  - Rectal polyp [Unknown]
  - Hot flush [Unknown]
  - Acute tonsillitis [Unknown]
  - Rhinitis allergic [Unknown]
  - Sinusitis [Unknown]
